FAERS Safety Report 4494024-6 (Version None)
Quarter: 2004Q4

REPORT INFORMATION
  Report Type: 
  Country: None (occurrence: None)
  Receive Date: 20041105
  Receipt Date: 20040806
  Transmission Date: 20050328
  Serious: Yes (Death, Life-Threatening)
  Sender: FDA-Public Use
  Company Number: 200417918GDDC

PATIENT
  Age: 9182 Day
  Sex: Male
  Weight: 80 kg

DRUGS (14)
  1. ENOXAPARIN [Suspect]
     Indication: SEPSIS
     Dosage: DOSE: UNK
     Dates: start: 20040718, end: 20040720
  2. XIGRIS [Suspect]
     Indication: SEPSIS
     Dosage: DOSE: UNK
     Dates: start: 20040718, end: 20040720
  3. MORPHINE [Concomitant]
     Indication: ANALGESIC EFFECT
     Dates: start: 20040717, end: 20040720
  4. OMEPRAZOLE [Concomitant]
     Indication: PROPHYLAXIS AGAINST GASTROINTESTINAL ULCER
     Dosage: DOSE: UNK
     Dates: start: 20040713
  5. PIPERACILLIN W/TAZOBACTAM [Concomitant]
     Indication: PERITONITIS
     Dosage: DOSE: UNK
     Dates: start: 20040717
  6. TOBRAMYCIN [Concomitant]
     Indication: PERITONITIS
     Dosage: DOSE: UNK
     Dates: start: 20040717
  7. METRONIDAZOLE [Concomitant]
     Indication: PERITONITIS
     Dosage: DOSE: UNK
     Dates: start: 20040717
  8. MIDAZOLAM HCL [Concomitant]
     Indication: LIFE SUPPORT
     Dosage: DOSE: UNK
     Dates: start: 20040717, end: 20040720
  9. NOREPINEPHRINE [Concomitant]
     Indication: SEPTIC SHOCK
     Dates: start: 20040718
  10. FUROSEMIDE [Concomitant]
     Indication: OLIGURIA
     Dosage: DOSE: UNK
     Dates: start: 20040715
  11. METAMIZOLE [Concomitant]
     Indication: ANALGESIC EFFECT
     Dosage: DOSE: UNK
     Dates: start: 20040713
  12. DOPAMINE HCL [Concomitant]
     Dosage: DOSE: UNK
     Dates: start: 20040714
  13. PARACETAMOL [Concomitant]
     Dosage: DOSE: UNK
     Dates: start: 20040718
  14. METOCLOPRAMIDE [Concomitant]
     Dosage: DOSE: UNK
     Dates: start: 20040714, end: 20040716

REACTIONS (8)
  - ACTIVATED PARTIAL THROMBOPLASTIN TIME PROLONGED [None]
  - BRAIN OEDEMA [None]
  - COMA [None]
  - PLATELET COUNT DECREASED [None]
  - PROTHROMBIN TIME PROLONGED [None]
  - PUPIL FIXED [None]
  - PUPILS UNEQUAL [None]
  - THROMBOSIS [None]
